FAERS Safety Report 5867007-9 (Version None)
Quarter: 2008Q3

REPORT INFORMATION
  Report Type: 
  Country: None (occurrence: None)
  Receive Date: 20080902
  Receipt Date: 20080826
  Transmission Date: 20090109
  Serious: Yes (Other)
  Sender: FDA-Public Use
  Company Number: A0744337A

PATIENT
  Age: 43 Year
  Sex: Male

DRUGS (4)
  1. ALBUTEROL [Suspect]
  2. PEG-INTRON [Suspect]
     Indication: HEPATITIS C
     Route: 058
     Dates: start: 20080112, end: 20080627
  3. RIBAVIRIN [Suspect]
     Indication: HEPATITIS C
     Route: 048
     Dates: start: 20080112, end: 20080627
  4. NEUPOGEN [Concomitant]

REACTIONS (2)
  - CONVULSION [None]
  - GALLBLADDER DISORDER [None]
